FAERS Safety Report 20726807 (Version 1)
Quarter: 2022Q2

REPORT INFORMATION
  Report Type: Spontaneous
  Country: US (occurrence: US)
  Receive Date: 20220419
  Receipt Date: 20220419
  Transmission Date: 20220720
  Serious: No
  Sender: FDA-Public Use
  Company Number: US-JAZZ-2021-US-026623

PATIENT
  Sex: Female

DRUGS (12)
  1. XYWAV [Suspect]
     Active Substance: CALCIUM OXYBATE\MAGNESIUM OXYBATE\POTASSIUM OXYBATE\SODIUM OXYBATE
     Indication: Narcolepsy
     Dosage: UNKNOWN
     Route: 048
  2. XYWAV [Suspect]
     Active Substance: CALCIUM OXYBATE\MAGNESIUM OXYBATE\POTASSIUM OXYBATE\SODIUM OXYBATE
     Indication: Cataplexy
  3. PIROXICAM [Concomitant]
     Active Substance: PIROXICAM
     Dosage: 0000
     Dates: start: 20160105
  4. VITAMIN D3 [Concomitant]
     Active Substance: CHOLECALCIFEROL
     Dosage: 0000
     Dates: start: 20160105
  5. BIOTIN [Concomitant]
     Active Substance: BIOTIN
     Dosage: 0000
     Dates: start: 20160105
  6. VITAMIN B COMPLEX [Concomitant]
     Active Substance: CYANOCOBALAMIN\DEXPANTHENOL\NIACINAMIDE\PYRIDOXINE HYDROCHLORIDE\RIBOFLAVIN 5^-PHOSPHATE SODIUM\THIA
     Dosage: 0000
     Dates: start: 20160105
  7. VITAMIN C [Concomitant]
     Active Substance: ASCORBIC ACID
     Dosage: 0000
     Dates: start: 20160108
  8. COENZYME Q10 [Concomitant]
     Active Substance: DIETARY SUPPLEMENT\UBIDECARENONE
     Dosage: 0000
     Dates: start: 20160111
  9. OMEGA 100 [Concomitant]
     Dosage: 0000
     Dates: start: 20160111
  10. TYLENOL EXTRA STRENGTH [Concomitant]
     Active Substance: ACETAMINOPHEN
     Dosage: 0000
     Dates: start: 20160111
  11. ALCOHOL [Concomitant]
     Active Substance: ALCOHOL
     Dosage: 0000
     Dates: start: 20160111
  12. RETINOL [Concomitant]
     Active Substance: RETINOL
     Dosage: 0000
     Dates: start: 20141101

REACTIONS (1)
  - Nasopharyngitis [Unknown]
